FAERS Safety Report 15930588 (Version 1)
Quarter: 2019Q1

REPORT INFORMATION
  Report Type: Spontaneous
  Country: CN (occurrence: CN)
  Receive Date: 20190207
  Receipt Date: 20190207
  Transmission Date: 20190417
  Serious: Yes (Other)
  Sender: FDA-Public Use
  Company Number: CN-BAXTER-2019BAX002376

PATIENT
  Age: 52 Year
  Sex: Male
  Weight: 69 kg

DRUGS (2)
  1. 20% MANNITOL INJECTION [Suspect]
     Active Substance: MANNITOL
     Indication: CEREBRAL HAEMATOMA
  2. 20% MANNITOL INJECTION [Suspect]
     Active Substance: MANNITOL
     Indication: BRAIN STEM HAEMATOMA
     Route: 041
     Dates: start: 20181119, end: 20181119

REACTIONS (3)
  - Oliguria [Recovering/Resolving]
  - Blood potassium increased [Recovering/Resolving]
  - Renal injury [Recovering/Resolving]

NARRATIVE: CASE EVENT DATE: 20181119
